FAERS Safety Report 5428932-6 (Version None)
Quarter: 2007Q3

REPORT INFORMATION
  Report Type: 
  Country: None (occurrence: None)
  Receive Date: 20070827
  Receipt Date: 20070821
  Transmission Date: 20080115
  Serious: Yes (Hospitalization, Other)
  Sender: FDA-Public Use
  Company Number: 167-C5013-07081153

PATIENT
  Age: 58 Year
  Weight: 86 kg

DRUGS (9)
  1. CC-5013 (LENALIDOMIDE) (CAPSULES) [Suspect]
     Indication: MULTIPLE MYELOMA
     Dosage: 25 MG, D1-21, ORAL
     Route: 048
     Dates: start: 20070711
  2. DEXAMETHASONE TAB [Suspect]
     Indication: MULTIPLE MYELOMA
     Dates: start: 20070711
  3. PREDNISOLONE [Concomitant]
  4. INSULIN (INSULIN) [Concomitant]
  5. CLODRONATE [Concomitant]
  6. AMITRIPTYLINE HCL [Concomitant]
  7. CODEINE PHOSPHATE (CODEINE PHOSPHATE) [Concomitant]
  8. ACV (ACICLOVIR) [Concomitant]
  9. MORPHINE [Concomitant]

REACTIONS (9)
  - ACUTE CORONARY SYNDROME [None]
  - BLOOD GLUCOSE INCREASED [None]
  - DIZZINESS [None]
  - ELECTROCARDIOGRAM T WAVE ABNORMAL [None]
  - HAEMATOCRIT DECREASED [None]
  - HAEMOGLOBIN DECREASED [None]
  - PAIN IN EXTREMITY [None]
  - PLATELET COUNT DECREASED [None]
  - RED BLOOD CELL COUNT DECREASED [None]
